FAERS Safety Report 9258844 (Version 5)
Quarter: 2013Q3

REPORT INFORMATION
  Report Type: Report from Study
  Country: US (occurrence: US)
  Receive Date: 20130426
  Receipt Date: 20130912
  Transmission Date: 20140515
  Serious: Yes (Hospitalization)
  Sender: FDA-Public Use
  Company Number: US-ACTELION-A-US2013-77719

PATIENT
  Age: 42 Year
  Sex: Female

DRUGS (6)
  1. VELETRI [Suspect]
     Dosage: 22 NG/KG, UNK
     Route: 042
     Dates: start: 20121222
  2. VELETRI [Suspect]
     Dosage: 30 NG/KG, UNK
     Route: 042
  3. ADCIRCA [Concomitant]
  4. LASIX [Concomitant]
  5. VELETRI [Suspect]
     Indication: PULMONARY ARTERIAL HYPERTENSION
     Dosage: 25 NG/KG, PER MIN
     Route: 042
     Dates: start: 20121222
  6. VELETRI [Suspect]
     Dosage: 10 NG/KG, PER MIN
     Route: 042
     Dates: start: 20121217

REACTIONS (22)
  - Dehydration [Recovering/Resolving]
  - Weight decreased [Recovering/Resolving]
  - Diarrhoea [Recovering/Resolving]
  - Diverticulitis [Unknown]
  - Dyspnoea [Unknown]
  - Abdominal discomfort [Unknown]
  - Asthenia [Unknown]
  - Panic attack [Unknown]
  - Stress [Unknown]
  - Nausea [Unknown]
  - Abdominal discomfort [Unknown]
  - Pain [Unknown]
  - Decreased appetite [Unknown]
  - Nasal congestion [Unknown]
  - Cough [Unknown]
  - Vaginal infection [Recovering/Resolving]
  - Pelvic pain [Recovering/Resolving]
  - Vomiting [Recovering/Resolving]
  - Abdominal pain [Recovering/Resolving]
  - Haematochezia [Unknown]
  - Anal haemorrhage [Unknown]
  - Fatigue [Unknown]
